FAERS Safety Report 17544087 (Version 1)
Quarter: 2020Q1

REPORT INFORMATION
  Report Type: Spontaneous
  Country: DE (occurrence: DE)
  Receive Date: 20200316
  Receipt Date: 20200316
  Transmission Date: 20200409
  Serious: Yes (Hospitalization)
  Sender: FDA-Public Use
  Company Number: DE-TEVA-2020-DE-1201470

PATIENT
  Age: 55 Year
  Sex: Female

DRUGS (3)
  1. METOPROLOL. [Concomitant]
     Active Substance: METOPROLOL
     Dosage: 190 MILLIGRAM DAILY; 95 MG, 1-0-1-0
  2. CANDESARTAN. [Concomitant]
     Active Substance: CANDESARTAN
     Dosage: NK MG, NK
  3. MIRTAZAPINE. [Suspect]
     Active Substance: MIRTAZAPINE
     Dosage: 30 MILLIGRAM DAILY; 30 MG, 0-0-1-0

REACTIONS (5)
  - Loss of consciousness [Unknown]
  - Seizure [Unknown]
  - Confusional state [Unknown]
  - Depressed level of consciousness [Unknown]
  - Disorientation [Unknown]
